FAERS Safety Report 8520676-7 (Version None)
Quarter: 2012Q3

REPORT INFORMATION
  Report Type: 
  Country: None (occurrence: None)
  Receive Date: 20120709
  Receipt Date: 20120627
  Transmission Date: 20120928
  Serious: Yes (Hospitalization, Other)
  Sender: FDA-Public Use
  Company Number: AUR-APL-2012-02877

PATIENT
  Age: 61 Year
  Sex: Female

DRUGS (3)
  1. METFFORMIN HYDROCHLORIDE [Suspect]
     Indication: DIABETES MELLITUS
     Dosage: (1000 MG)
     Dates: end: 20120101
  2. LIPITOR [Suspect]
     Indication: PRODUCT USED FOR UNKNOWN INDICATION
     Dates: end: 20120101
  3. ACCUPRIL [Suspect]
     Indication: HYPERTENSION
     Dates: end: 20120101

REACTIONS (9)
  - MALAISE [None]
  - DISCOMFORT [None]
  - LOSS OF CONSCIOUSNESS [None]
  - MENTAL DISORDER [None]
  - COMA [None]
  - AMNESIA [None]
  - TREMOR [None]
  - MYALGIA [None]
  - ANAEMIA [None]
